FAERS Safety Report 6081641-5 (Version None)
Quarter: 2009Q1

REPORT INFORMATION
  Report Type: 
  Country: None (occurrence: None)
  Receive Date: 20090218
  Receipt Date: 20071003
  Transmission Date: 20090719
  Serious: Yes (Hospitalization)
  Sender: FDA-Public Use
  Company Number: HK-PFIZER INC-2009151610

PATIENT

DRUGS (22)
  1. OLMESARTAN MEDOXOMIL [Suspect]
     Dosage: 10 MG, 1X/DAY
     Route: 048
     Dates: start: 20050105, end: 20050131
  2. BLINDED THERAPY [Suspect]
     Dosage: 20 MG, 1X/DAY
     Route: 048
     Dates: start: 20050201, end: 20050301
  3. BLINDED THERAPY [Suspect]
     Dosage: 40 MG, 1X/DAY
     Route: 048
     Dates: start: 20050302, end: 20060321
  4. BLINDED THERAPY [Suspect]
     Dosage: 40 MG, 1X/DAY
     Route: 048
     Dates: start: 20060331, end: 20060331
  5. ZESTRIL [Concomitant]
     Indication: DIABETIC NEPHROPATHY
     Dosage: 2.5 MG, 1X/DAY
     Route: 048
     Dates: start: 20041122, end: 20060321
  6. DILATREND [Concomitant]
     Indication: CARDIAC FAILURE CONGESTIVE
     Dosage: 12.5 MG, 1X/DAY
     Route: 048
     Dates: start: 20041122
  7. DILATREND [Concomitant]
     Indication: CARDIOMYOPATHY
  8. LASIX [Concomitant]
     Indication: CARDIAC FAILURE CONGESTIVE
     Dosage: 20 MG, 1X/DAY
     Route: 048
     Dates: start: 20050914
  9. ACETYLSALICYLIC ACID [Concomitant]
     Indication: CARDIOVASCULAR EVENT PROPHYLAXIS
     Dosage: 160 MG, 1X/DAY
     Route: 048
     Dates: start: 20041122
  10. ISOSORBIDE MN [Concomitant]
     Indication: CARDIAC FAILURE CONGESTIVE
     Dosage: 20 MG, 2X/DAY
     Route: 048
     Dates: start: 20041122
  11. ALLOPURINOL [Concomitant]
     Indication: GOUT
     Dosage: 100 MG, 1X/DAY
     Route: 048
     Dates: start: 20041122
  12. NORVASC [Concomitant]
     Indication: HYPERTENSION
     Dosage: 5 MG, 1X/DAY
     Route: 048
     Dates: start: 20050914
  13. COLCHICINE [Concomitant]
     Indication: GOUT
     Dosage: PRN (0.5 MG, 2)
     Route: 048
     Dates: start: 20041122
  14. GLYCERYL TRINITRATE [Concomitant]
     Indication: ANGINA PECTORIS
     Dosage: UNK, PRN (1 DOSAGE FORMS,1)
     Route: 060
     Dates: start: 20041122
  15. AQUEOUS CREAM [Concomitant]
     Indication: DRY SKIN
     Dosage: UNK
     Route: 061
     Dates: start: 20050105, end: 20060321
  16. BETNOVATE [Concomitant]
     Indication: DERMATITIS
     Dosage: UNK
     Route: 061
     Dates: start: 20050302
  17. EMULSIFYING OINTMENT [Concomitant]
     Indication: DERMATITIS
     Dosage: UNK
     Route: 061
     Dates: start: 20050718
  18. PIRITON [Concomitant]
     Indication: DERMATITIS
     Dosage: PRN (4 MG, 3)
     Route: 048
     Dates: start: 20050324
  19. EMULSIFYING OINTMENT [Concomitant]
     Dosage: UNK
     Route: 061
     Dates: start: 20050718
  20. ALL OTHER THERAPEUTIC PRODUCTS [Concomitant]
     Indication: PRURITUS
     Dosage: 25 MG, (1)
     Route: 048
     Dates: start: 20060301
  21. ATROPINE [Concomitant]
     Indication: BRADYCARDIA
     Dosage: 0.6 MG, 1X/DAY
     Route: 042
     Dates: start: 20060322, end: 20060322
  22. ACTRAPID [Concomitant]
     Indication: DIABETES MELLITUS INADEQUATE CONTROL
     Dosage: UNK(1D)
     Route: 042
     Dates: start: 20060322, end: 20060322

REACTIONS (4)
  - DERMATITIS [None]
  - HYPERKALAEMIA [None]
  - RENAL IMPAIRMENT [None]
  - SEPSIS [None]
